FAERS Safety Report 10243107 (Version 1)
Quarter: 2014Q2

REPORT INFORMATION
  Report Type: Spontaneous
  Country: US (occurrence: None)
  Receive Date: 20140616
  Receipt Date: 20140616
  Transmission Date: 20141212
  Serious: Yes (Other)
  Sender: FDA-Public Use
  Company Number: None

PATIENT
  Age: 56 Year
  Sex: Female
  Weight: 117.94 kg

DRUGS (1)
  1. AVONEX [Suspect]
     Indication: MULTIPLE SCLEROSIS
     Dosage: 30 MCG INJECTABLE SUBCUTANEOUS 057 WEEKLY
     Route: 058
     Dates: start: 20080101

REACTIONS (4)
  - Drug intolerance [None]
  - Sedation [None]
  - Weight increased [None]
  - Oedema [None]
